FAERS Safety Report 18213872 (Version 1)
Quarter: 2020Q3

REPORT INFORMATION
  Report Type: Spontaneous
  Country: US (occurrence: US)
  Receive Date: 20200831
  Receipt Date: 20200831
  Transmission Date: 20201103
  Serious: No
  Sender: FDA-Public Use
  Company Number: US-JNJFOC-20200835742

PATIENT
  Sex: Female
  Weight: 46.31 kg

DRUGS (2)
  1. MENS ROGAINE EXTRA STRENGTH [Suspect]
     Active Substance: MINOXIDIL
     Dosage: DOSE: UP TO LITTLE LINE IN THE DROPPER AND FREQUENCY: TWICE A DAY.?THE PRODUCT WAS LAST USED ON 20/A
     Route: 061
     Dates: start: 202008
  2. MENS ROGAINE EXTRA STRENGTH [Suspect]
     Active Substance: MINOXIDIL
     Indication: ALOPECIA
     Dosage: DOSE: UPTO LITTLE LINE AND FREQUENCY: TWICE A DAY.?START AND STOP DATE: LONG TIME AGO
     Route: 061

REACTIONS (2)
  - Product use issue [Unknown]
  - Intentional product misuse [Unknown]
